FAERS Safety Report 8541215-0 (Version None)
Quarter: 2012Q3

REPORT INFORMATION
  Report Type: 
  Country: None (occurrence: None)
  Receive Date: 20120726
  Receipt Date: 20110915
  Transmission Date: 20120928
  Serious: No
  Sender: FDA-Public Use
  Company Number: US-ASTRAZENECA-2011SE55446

PATIENT
  Age: 49 Year
  Sex: Female
  Weight: 49.4 kg

DRUGS (1)
  1. SEROQUEL [Suspect]
     Indication: DEPRESSION
     Route: 048
     Dates: start: 20110701

REACTIONS (5)
  - ARTHRALGIA [None]
  - MUSCLE TIGHTNESS [None]
  - MUSCLE SPASMS [None]
  - INCREASED APPETITE [None]
  - OFF LABEL USE [None]
